FAERS Safety Report 16115938 (Version 11)
Quarter: 2021Q3

REPORT INFORMATION
  Report Type: Spontaneous
  Country: FR (occurrence: FR)
  Receive Date: 20190326
  Receipt Date: 20210707
  Transmission Date: 20211014
  Serious: Yes (Death, Life-Threatening, Hospitalization, Other)
  Sender: FDA-Public Use
  Company Number: FR-AUROBINDO-AUR-APL-2019-015523

PATIENT
  Age: 67 Year
  Sex: Female
  Weight: 72 kg

DRUGS (20)
  1. BISOPROLOL [Suspect]
     Active Substance: BISOPROLOL
     Indication: HYPERTENSION
     Dosage: 10 MILLIGRAM, ONCE A DAY
     Route: 065
  2. KARDEGIC [Concomitant]
     Active Substance: ASPIRIN DL-LYSINE
     Indication: PRODUCT USED FOR UNKNOWN INDICATION
     Dosage: 75 MILLIGRAM, ONCE A DAY
     Route: 065
  3. INEGY [Suspect]
     Active Substance: EZETIMIBE\SIMVASTATIN
     Indication: DYSLIPIDAEMIA
     Dosage: (10 MG/ 20 MG) DAILY
     Route: 065
  4. VOTRIENT [Suspect]
     Active Substance: PAZOPANIB HYDROCHLORIDE
     Indication: RENAL CANCER METASTATIC
     Dosage: 600 MILLIGRAM, ONCE A DAY
     Route: 048
     Dates: start: 20181213, end: 20191126
  5. METFORMIN ARROW [Suspect]
     Active Substance: METFORMIN HYDROCHLORIDE
     Indication: TYPE 2 DIABETES MELLITUS
     Dosage: 3000 MILLIGRAM, ONCE A DAY
     Route: 048
  6. ACARBOSE. [Suspect]
     Active Substance: ACARBOSE
     Indication: TYPE 2 DIABETES MELLITUS
     Dosage: 150 MILLIGRAM, ONCE A DAY
     Route: 065
  7. JANUVIA [Suspect]
     Active Substance: SITAGLIPTIN PHOSPHATE
     Dosage: UNK
  8. VOTRIENT [Suspect]
     Active Substance: PAZOPANIB HYDROCHLORIDE
     Dosage: 800 MILLIGRAM, ONCE A DAY
     Route: 048
  9. JANUVIA [Suspect]
     Active Substance: SITAGLIPTIN PHOSPHATE
     Indication: TYPE 2 DIABETES MELLITUS
     Dosage: 100 MILLIGRAM, ONCE A DAY
     Route: 065
  10. RILMENIDINE BIOGARAN [Suspect]
     Active Substance: RILMENIDINE
     Indication: HYPERTENSION
     Dosage: 1 MILLIGRAM, ONCE A DAY
     Route: 065
  11. VOTRIENT [Suspect]
     Active Substance: PAZOPANIB HYDROCHLORIDE
     Dosage: 600 MILLIGRAM, DAILY
     Route: 048
  12. RILMENIDINE [Concomitant]
     Active Substance: RILMENIDINE
     Indication: PRODUCT USED FOR UNKNOWN INDICATION
     Dosage: 1 MILLIGRAM, ONCE A DAY
     Route: 065
  13. VOTRIENT [Suspect]
     Active Substance: PAZOPANIB HYDROCHLORIDE
     Dosage: 800 MILLIGRAM, ONCE A DAY
     Route: 048
     Dates: start: 20190108, end: 20191126
  14. ACARBOSE. [Suspect]
     Active Substance: ACARBOSE
     Dosage: UNK
  15. LANTUS [Suspect]
     Active Substance: INSULIN GLARGINE
     Indication: TYPE 2 DIABETES MELLITUS
     Dosage: 50 INTERNATIONAL UNIT,
     Route: 065
     Dates: end: 20190307
  16. VOTRIENT [Suspect]
     Active Substance: PAZOPANIB HYDROCHLORIDE
     Dosage: 400 MILLIGRAM, ONCE A DAY
     Route: 048
     Dates: start: 20181213, end: 20191126
  17. METFORMIN ARROW [Suspect]
     Active Substance: METFORMIN HYDROCHLORIDE
     Dosage: 1000 DOSAGE FORM
     Route: 048
     Dates: end: 20190307
  18. PERINDOPRIL/INDAPAMIDE SANDOZ [Suspect]
     Active Substance: INDAPAMIDE\PERINDOPRIL
     Indication: HYPERTENSION
     Dosage: UNK
     Route: 065
     Dates: end: 20190307
  19. RILMENIDINE BIOGARAN [Suspect]
     Active Substance: RILMENIDINE
     Dosage: 1 DOSAGE FORM (1 UG/ LITER)
     Route: 048
     Dates: end: 20190307
  20. VOTRIENT [Suspect]
     Active Substance: PAZOPANIB HYDROCHLORIDE
     Dosage: 400 MILLIGRAM, ONCE A DAY
     Route: 048
     Dates: start: 20190514

REACTIONS (38)
  - Dehydration [Recovered/Resolved]
  - Lactic acidosis [Recovering/Resolving]
  - Hypothyroidism [Recovering/Resolving]
  - Malnutrition [Recovered/Resolved]
  - Vitamin D deficiency [Recovered/Resolved]
  - Acute kidney injury [Recovered/Resolved with Sequelae]
  - Peripheral artery haematoma [Unknown]
  - Decreased appetite [Unknown]
  - Metabolic acidosis [Unknown]
  - Blood pressure systolic increased [Unknown]
  - Pneumonia [Recovering/Resolving]
  - Shock haemorrhagic [Recovered/Resolved]
  - Pruritus [Recovered/Resolved]
  - Asthenia [Recovered/Resolved]
  - Renal cancer metastatic [Fatal]
  - Diarrhoea [Recovered/Resolved]
  - Hyperkalaemia [Recovered/Resolved]
  - Oedema peripheral [Recovered/Resolved]
  - Vomiting [Recovered/Resolved]
  - Staphylococcal sepsis [Recovering/Resolving]
  - General physical health deterioration [Unknown]
  - Coma [Recovered/Resolved]
  - Chronic kidney disease [Unknown]
  - Constipation [Recovered/Resolved]
  - Shock [Recovered/Resolved]
  - Blood pressure systolic decreased [Unknown]
  - Haematoma [Unknown]
  - Psychomotor retardation [Recovered/Resolved]
  - Malignant neoplasm progression [Fatal]
  - Metastases to central nervous system [Fatal]
  - Heart rate decreased [Unknown]
  - Anaemia [Recovered/Resolved]
  - Hyperleukocytosis [Recovered/Resolved]
  - Cell death [Recovered/Resolved]
  - Urinary incontinence [Not Recovered/Not Resolved]
  - Accidental overdose [Unknown]
  - Staphylococcal infection [Recovered/Resolved]
  - Intestinal transit time abnormal [Recovered/Resolved]

NARRATIVE: CASE EVENT DATE: 20190108
